FAERS Safety Report 19627961 (Version 1)
Quarter: 2021Q3

REPORT INFORMATION
  Report Type: Spontaneous
  Country: US (occurrence: US)
  Receive Date: 20210728
  Receipt Date: 20210728
  Transmission Date: 20211014
  Serious: No
  Sender: FDA-Public Use
  Company Number: US-MYLANLABS-2021M1044319

PATIENT
  Sex: Female
  Weight: 39 kg

DRUGS (2)
  1. WIXELA INHUB [Suspect]
     Active Substance: FLUTICASONE PROPIONATE\SALMETEROL XINAFOATE
     Indication: PULMONARY FIBROSIS
  2. WIXELA INHUB [Suspect]
     Active Substance: FLUTICASONE PROPIONATE\SALMETEROL XINAFOATE
     Indication: ASTHMA
     Dosage: UNK , BID  TWICE A DAY (250/50 MCG)
     Route: 055
     Dates: start: 20210709, end: 20210709

REACTIONS (1)
  - Prescription drug used without a prescription [Unknown]
